FAERS Safety Report 18209739 (Version 1)
Quarter: 2020Q3

REPORT INFORMATION
  Report Type: Other
  Country: CA (occurrence: US)
  Receive Date: 20200828
  Receipt Date: 20200828
  Transmission Date: 20201103
  Serious: Yes (Other)
  Sender: FDA-Public Use
  Company Number: US-AVA, INC.-2089166

PATIENT
  Sex: Female

DRUGS (1)
  1. BACTOSHIELD CHG [Suspect]
     Active Substance: CHLORHEXIDINE GLUCONATE
     Indication: SURGERY
     Route: 061

REACTIONS (1)
  - Dyspnoea [Recovered/Resolved]
